FAERS Safety Report 20875905 (Version 2)
Quarter: 2022Q2

REPORT INFORMATION
  Report Type: Spontaneous
  Country: DK (occurrence: DK)
  Receive Date: 20220526
  Receipt Date: 20220530
  Transmission Date: 20220720
  Serious: Yes (Other)
  Sender: FDA-Public Use
  Company Number: DK-JNJFOC-20220540923

PATIENT
  Age: 58 Year
  Sex: Male

DRUGS (1)
  1. CONCERTA [Suspect]
     Active Substance: METHYLPHENIDATE HYDROCHLORIDE
     Indication: Hypopituitarism
     Route: 048

REACTIONS (3)
  - Glaucoma [Unknown]
  - Off label use [Unknown]
  - Product use in unapproved indication [Unknown]
